FAERS Safety Report 9518588 (Version 1)
Quarter: 2013Q3

REPORT INFORMATION
  Report Type: Spontaneous
  Country: FR (occurrence: FR)
  Receive Date: 20130912
  Receipt Date: 20130912
  Transmission Date: 20140515
  Serious: Yes (Other)
  Sender: FDA-Public Use
  Company Number: PHHY2013FR100430

PATIENT
  Age: 77 Year
  Sex: Female

DRUGS (3)
  1. ACLASTA [Suspect]
     Dosage: UNK UKN, UNK
     Route: 042
     Dates: start: 20110704
  2. COVERSYL                                /BEL/ [Concomitant]
     Dosage: UNK UKN, UNK
  3. LEVOTHYROX [Concomitant]
     Dosage: UNK UKN, UNK

REACTIONS (1)
  - Somnolence [Recovered/Resolved]
